FAERS Safety Report 6952508-2 (Version None)
Quarter: 2010Q3

REPORT INFORMATION
  Report Type: 
  Country: None (occurrence: None)
  Receive Date: 20100829
  Receipt Date: 20100503
  Transmission Date: 20110219
  Serious: No
  Sender: FDA-Public Use
  Company Number: US-ABBOTT-10P-163-0642890-00

PATIENT
  Sex: Male
  Weight: 108.96 kg

DRUGS (6)
  1. NIASPAN [Suspect]
     Indication: BLOOD TRIGLYCERIDES INCREASED
     Dosage: 500MG EVERY NIGHT
     Dates: start: 20100101, end: 20100301
  2. NIASPAN [Suspect]
     Dosage: 250MG EVERY NIGHT
     Dates: start: 20100301
  3. TRICOR [Concomitant]
     Indication: BLOOD CHOLESTEROL INCREASED
  4. LOTREL [Concomitant]
     Indication: HYPERTENSION
  5. ALLOPURINOL [Concomitant]
     Indication: GOUT
  6. ANDROGEL [Concomitant]
     Indication: BLOOD TESTOSTERONE DECREASED

REACTIONS (2)
  - FLUSHING [None]
  - WRONG TECHNIQUE IN DRUG USAGE PROCESS [None]
